FAERS Safety Report 8232597-8 (Version None)
Quarter: 2012Q1

REPORT INFORMATION
  Report Type: 
  Country: None (occurrence: None)
  Receive Date: 20120323
  Receipt Date: 20120314
  Transmission Date: 20120608
  Serious: Yes (Disabling)
  Sender: FDA-Public Use
  Company Number: GB-NOVOPROD-347195

PATIENT
  Age: 48 Year
  Sex: Female
  Weight: 95.5 kg

DRUGS (5)
  1. RAMIPRIL [Concomitant]
     Indication: HYPERTENSION
     Dosage: 2.5 MG, UNK
     Route: 048
     Dates: start: 20090901, end: 20120201
  2. SIMVASTATIN [Concomitant]
     Indication: BLOOD CHOLESTEROL INCREASED
     Dosage: 40 MG, QD
     Route: 048
     Dates: start: 20050801
  3. GLIPIZIDE [Concomitant]
     Indication: DIABETES MELLITUS
     Dosage: 2 DF, TID
     Route: 048
     Dates: start: 20060501
  4. METFORMIN HCL [Concomitant]
     Indication: DIABETES MELLITUS
     Dosage: 2 DF, TID
     Route: 048
     Dates: start: 20051101, end: 20120201
  5. VICTOZA [Suspect]
     Indication: DIABETES MELLITUS
     Dosage: 0.6 MG, QD
     Route: 030
     Dates: start: 20110531, end: 20120220

REACTIONS (5)
  - PELVI-URETERIC OBSTRUCTION [None]
  - RENAL IMPAIRMENT [None]
  - PROTEINURIA [None]
  - RENAL COLIC [None]
  - NEPHROLITHIASIS [None]
